FAERS Safety Report 6048855-1 (Version None)
Quarter: 2009Q1

REPORT INFORMATION
  Report Type: 
  Country: None (occurrence: None)
  Receive Date: 20090121
  Receipt Date: 20080715
  Transmission Date: 20090719
  Serious: Yes (Other)
  Sender: FDA-Public Use
  Company Number: US-WYE-H0514908

PATIENT
  Age: 62 Year
  Sex: Female
  Weight: 62.2 kg

DRUGS (3)
  1. PREMPRO (CONJUGATED ESTROGENS ) MEDROXYPROGESTERONE ACE  ) [Suspect]
     Indication: MENOPAUSE
     Dosage: 1 TABLET 1X PER 1 DAY, ORAL
     Route: 048
     Dates: start: 19970101, end: 20080401
  2. VYTORIN [Concomitant]
  3. LISINOPRIL [Concomitant]

REACTIONS (4)
  - BLOOD PRESSURE DECREASED [None]
  - DRUG WITHDRAWAL SYNDROME [None]
  - FATIGUE [None]
  - PAIN [None]
